FAERS Safety Report 20372422 (Version 2)
Quarter: 2022Q3

REPORT INFORMATION
  Report Type: Spontaneous
  Country: US (occurrence: None)
  Receive Date: 20220124
  Receipt Date: 20220715
  Transmission Date: 20221027
  Serious: No
  Sender: FDA-Public Use
  Company Number: US-MDD US Operations-SUP202110-002079

PATIENT
  Age: 9 Year
  Sex: Male

DRUGS (1)
  1. QELBREE [Suspect]
     Active Substance: VILOXAZINE HYDROCHLORIDE
     Indication: Attention deficit hyperactivity disorder
     Dates: start: 202106

REACTIONS (5)
  - Frustration tolerance decreased [Unknown]
  - Anger [Unknown]
  - Somnolence [Unknown]
  - Restlessness [Unknown]
  - Product dose omission issue [Unknown]
